FAERS Safety Report 9771886 (Version 1)
Quarter: 2013Q3

REPORT INFORMATION
  Report Type: Spontaneous
  Country: US (occurrence: None)
  Receive Date: 20130925
  Receipt Date: 20130925
  Transmission Date: 20140515
  Serious: Yes (Hospitalization)
  Sender: FDA-Public Use
  Company Number: KAMADA LTD MFR # 42001

PATIENT
  Age: 38 Year
  Sex: Male
  Weight: 54.89 kg

DRUGS (1)
  1. GLASSIA [Suspect]
     Indication: ALPHA-1 ANTI-TRYPSIN DEFICIENCY
     Dosage: 4000+/-10% WEEKLY IV
     Route: 042
     Dates: start: 20130401

REACTIONS (4)
  - Transient ischaemic attack [None]
  - Fall [None]
  - Pneumonia [None]
  - Myocardial ischaemia [None]
